FAERS Safety Report 4495614-7 (Version None)
Quarter: 2004Q4

REPORT INFORMATION
  Report Type: 
  Country: None (occurrence: None)
  Receive Date: 20041108
  Receipt Date: 20041026
  Transmission Date: 20050328
  Serious: Yes (Hospitalization)
  Sender: FDA-Public Use
  Company Number: HU-MERCK-0410USA04318

PATIENT
  Age: 62 Year
  Sex: Female

DRUGS (2)
  1. CUPRIMINE [Suspect]
     Route: 048
     Dates: start: 20011101, end: 20020201
  2. CUPRIMINE [Suspect]
     Route: 048
     Dates: start: 20020201

REACTIONS (7)
  - JOINT SWELLING [None]
  - LIP ULCERATION [None]
  - PEMPHIGUS [None]
  - RHEUMATOID ARTHRITIS [None]
  - SCLERODERMA [None]
  - SJOGREN'S SYNDROME [None]
  - SYSTEMIC SCLEROSIS [None]
